FAERS Safety Report 11842952 (Version 1)
Quarter: 2015Q4

REPORT INFORMATION
  Report Type: Spontaneous
  Country: US (occurrence: US)
  Receive Date: 20151216
  Receipt Date: 20151216
  Transmission Date: 20160305
  Serious: Yes (Hospitalization, Other)
  Sender: FDA-Public Use
  Company Number: US-JAZZ-2014-US-016084

PATIENT
  Sex: Female
  Weight: 54.42 kg

DRUGS (2)
  1. XYREM [Suspect]
     Active Substance: SODIUM OXYBATE
     Dosage: 4.5 G, BID
     Route: 048
     Dates: start: 2007
  2. XYREM [Suspect]
     Active Substance: SODIUM OXYBATE
     Indication: HYPERSOMNIA
     Dosage: 2.25 G, BID
     Route: 048
     Dates: start: 200707, end: 2007

REACTIONS (3)
  - Pulmonary mass [Recovered/Resolved]
  - Nerve injury [Unknown]
  - Colon cancer stage IV [Recovered/Resolved]

NARRATIVE: CASE EVENT DATE: 2015
